FAERS Safety Report 22122424 (Version 1)
Quarter: 2023Q1

REPORT INFORMATION
  Report Type: Spontaneous
  Country: DE (occurrence: DE)
  Receive Date: 20230321
  Receipt Date: 20230321
  Transmission Date: 20230418
  Serious: Yes (Other)
  Sender: FDA-Public Use
  Company Number: DE-BAUSCH-BL-2023-004687

PATIENT
  Age: 78 Year
  Sex: Male

DRUGS (1)
  1. ZYCLARA [Suspect]
     Active Substance: IMIQUIMOD
     Indication: Product used for unknown indication
     Route: 065
     Dates: start: 20230220, end: 20230305

REACTIONS (7)
  - Poisoning [Unknown]
  - Illness [Unknown]
  - Peripheral coldness [Unknown]
  - Disturbance in attention [Unknown]
  - Heart rate decreased [Unknown]
  - Nausea [Unknown]
  - Malaise [Unknown]

NARRATIVE: CASE EVENT DATE: 20230301
